FAERS Safety Report 7461505-2 (Version None)
Quarter: 2011Q2

REPORT INFORMATION
  Report Type: 
  Country: None (occurrence: None)
  Receive Date: 20110506
  Receipt Date: 20110504
  Transmission Date: 20111010
  Serious: No
  Sender: FDA-Public Use
  Company Number: US-PFIZER INC-2011096941

PATIENT
  Sex: Female
  Weight: 56.7 kg

DRUGS (4)
  1. PSEUDOEPHEDRINE [Concomitant]
     Indication: HYPERSENSITIVITY
     Dosage: 30 MG, AS NEEDED
     Route: 048
  2. BUSPAR [Concomitant]
     Indication: ANXIETY
     Dosage: 10 MG, 3X/DAY
     Route: 048
  3. MEDROL [Suspect]
     Indication: JOINT INJURY
     Dosage: UNK
     Dates: start: 20110402, end: 20110408
  4. AMOXYCILLIN [Concomitant]
     Indication: BRONCHITIS
     Dosage: UNK

REACTIONS (1)
  - ANGER [None]
